FAERS Safety Report 7001255-X (Version None)
Quarter: 2010Q3

REPORT INFORMATION
  Report Type: 
  Country: None (occurrence: None)
  Receive Date: 20100920
  Receipt Date: 20100212
  Transmission Date: 20110219
  Serious: Yes (Other)
  Sender: FDA-Public Use
  Company Number: US-ASTRAZENECA-2009SE26434

PATIENT
  Age: 46 Year
  Sex: Male
  Weight: 107 kg

DRUGS (10)
  1. SEROQUEL [Suspect]
     Indication: BIPOLAR DISORDER
     Route: 048
     Dates: start: 20070726
  2. OMEPRAZOLE [Concomitant]
     Indication: GASTROOESOPHAGEAL REFLUX DISEASE
     Route: 048
     Dates: start: 20070726
  3. SIMVASTATIN [Concomitant]
     Indication: BLOOD CHOLESTEROL ABNORMAL
     Route: 048
     Dates: start: 20070726
  4. LOTREL [Concomitant]
     Indication: HYPERTENSION
     Dosage: 5/20 MG DAILY
     Route: 048
     Dates: start: 20080908
  5. LEXAPRO [Concomitant]
     Indication: ANXIETY
     Route: 048
     Dates: start: 20040208
  6. CHANTIX [Concomitant]
     Dosage: TWO TIMES A DAY
  7. PHENTERMINE [Concomitant]
  8. OTHER MEDS [Concomitant]
  9. MOBIC [Concomitant]
     Indication: HYPOTENSION
     Dates: start: 20091012
  10. CLONAZEPAM [Concomitant]
     Indication: ANXIETY
     Dates: start: 20010101

REACTIONS (1)
  - TYPE 2 DIABETES MELLITUS [None]
